FAERS Safety Report 24170308 (Version 1)
Quarter: 2024Q3

REPORT INFORMATION
  Report Type: Spontaneous
  Country: IT (occurrence: IT)
  Receive Date: 20240803
  Receipt Date: 20240803
  Transmission Date: 20241017
  Serious: Yes (Life-Threatening, Hospitalization, Other)
  Sender: CADILA
  Company Number: IT-CPL-004475

PATIENT
  Age: 15 Year
  Sex: Female
  Weight: 48 kg

DRUGS (7)
  1. FLUOXETINE [Suspect]
     Active Substance: FLUOXETINE HYDROCHLORIDE
  2. PREGABALIN [Suspect]
     Active Substance: PREGABALIN
  3. QUETIAPINE [Suspect]
     Active Substance: QUETIAPINE
     Dosage: (SLOW-RELEASE FORMULATION)
  4. ASPIRIN [Suspect]
     Active Substance: ASPIRIN
  5. BISOPROLOL [Suspect]
     Active Substance: BISOPROLOL\BISOPROLOL FUMARATE
  6. FUROSEMIDE [Suspect]
     Active Substance: FUROSEMIDE
  7. ALPRAZOLAM [Suspect]
     Active Substance: ALPRAZOLAM

REACTIONS (7)
  - Loss of consciousness [Recovered/Resolved]
  - Intentional overdose [Unknown]
  - Bezoar [Recovered/Resolved]
  - Toxicity to various agents [Unknown]
  - Bradypnoea [Recovered/Resolved]
  - Sinus bradycardia [Recovered/Resolved]
  - Hypotension [Recovered/Resolved]
